FAERS Safety Report 7751138-2 (Version None)
Quarter: 2011Q3

REPORT INFORMATION
  Report Type: 
  Country: None (occurrence: None)
  Receive Date: 20110912
  Receipt Date: 20110829
  Transmission Date: 20111222
  Serious: Yes (Other)
  Sender: FDA-Public Use
  Company Number: 2011MA003511

PATIENT
  Sex: Male
  Weight: 73.0291 kg

DRUGS (34)
  1. LANTUS [Concomitant]
  2. CLONAZEPAM [Concomitant]
  3. CIPROFLOXACIN [Concomitant]
  4. PREVACID [Concomitant]
  5. NOVOLOG [Concomitant]
  6. TRILYTE [Concomitant]
  7. BISACODYL [Concomitant]
  8. DOC-Q-LACE [Concomitant]
  9. HUMALOG [Concomitant]
  10. AMITRIPTYLINE HCL [Concomitant]
  11. PANTOPRAZOLE [Concomitant]
  12. METOCLOPRAMIDE [Suspect]
     Indication: NAUSEA
     Dosage: 20 MG, QID, PO
     Route: 048
     Dates: start: 20080721, end: 20090905
  13. METOCLOPRAMIDE [Suspect]
     Indication: IMPAIRED GASTRIC EMPTYING
     Dosage: 20 MG, QID, PO
     Route: 048
     Dates: start: 20080721, end: 20090905
  14. ZOLPIDEM [Concomitant]
  15. METRONIDAZOLE [Concomitant]
  16. PROCHLORPERAZINE [Concomitant]
  17. LEVITRA [Concomitant]
  18. SERTRALINE HYDROCHLORIDE [Concomitant]
  19. HYDROCODONE BITARTRATE AND ACETAMINOPHEN [Concomitant]
  20. PROMETHAZINE [Concomitant]
  21. PRILOSEC [Concomitant]
  22. POLYETHYLENE GLYCOL [Concomitant]
  23. DIAZEPAM [Concomitant]
  24. METFORMIN HCL [Concomitant]
  25. ATIVAN [Concomitant]
  26. ERYTHROMYCIN [Concomitant]
  27. LISINOPRIL [Concomitant]
  28. METOPROLOL SUCCINATE [Concomitant]
  29. LIPITOR [Concomitant]
  30. TRAMADOL HCL [Concomitant]
  31. ULTRAM [Concomitant]
  32. ONDANSETRON [Concomitant]
  33. MIDRIN [Concomitant]
  34. NEURONTIN [Concomitant]

REACTIONS (16)
  - EXTRAPYRAMIDAL DISORDER [None]
  - FLAT AFFECT [None]
  - ABDOMINAL PAIN [None]
  - IMPAIRED GASTRIC EMPTYING [None]
  - DYSKINESIA [None]
  - DEPRESSED MOOD [None]
  - VOMITING [None]
  - TARDIVE DYSKINESIA [None]
  - ERECTILE DYSFUNCTION [None]
  - NAUSEA [None]
  - BLOOD POTASSIUM DECREASED [None]
  - TREMOR [None]
  - ECONOMIC PROBLEM [None]
  - GASTRITIS [None]
  - EMOTIONAL DISORDER [None]
  - PAIN [None]
